FAERS Safety Report 9999011 (Version 2)
Quarter: 2014Q1

REPORT INFORMATION
  Report Type: Spontaneous
  Country: US (occurrence: US)
  Receive Date: 20140312
  Receipt Date: 20140312
  Transmission Date: 20141002
  Serious: No
  Sender: FDA-Public Use
  Company Number: US-SHIRE-ALL1-2014-00846

PATIENT
  Sex: Female
  Weight: 67.12 kg

DRUGS (6)
  1. VYVANSE [Suspect]
     Indication: ATTENTION DEFICIT/HYPERACTIVITY DISORDER
     Dosage: 70 MG, 1X/DAY:QD
     Route: 048
     Dates: start: 201209
  2. ZYRTEC [Concomitant]
     Indication: HYPERSENSITIVITY
     Dosage: UNK UNK (5 OR 10 MG), 1X/DAY:QD (AS NEEDED)
     Route: 065
  3. SUDAFED PE [Concomitant]
     Indication: HYPERSENSITIVITY
     Dosage: 5 MG, UNKNOWN (ONCE OR TWICE DAILY AS NEEDED)
     Route: 065
  4. MULTIVITAMIN                       /00097801/ [Concomitant]
     Indication: PRODUCT USED FOR UNKNOWN INDICATION
     Dosage: 1 DF, 1X/DAY:QD
     Route: 065
  5. ADVIL                              /00044201/ [Concomitant]
     Indication: PAIN
     Dosage: 2 DF, 2X/DAY:BID (AS NEEDED)
     Route: 065
  6. TYLENOL                            /00020001/ [Concomitant]
     Indication: PAIN
     Dosage: 2 DF, 2X/DAY:BID (AS NEEDED)
     Route: 065

REACTIONS (1)
  - Drug effect incomplete [Not Recovered/Not Resolved]
